FAERS Safety Report 24875611 (Version 11)
Quarter: 2025Q2

REPORT INFORMATION
  Report Type: Report from Study
  Country: CA (occurrence: CA)
  Receive Date: 20250122
  Receipt Date: 20250626
  Transmission Date: 20250716
  Serious: Yes (Other)
  Sender: GILEAD
  Company Number: CA-GSK-CA2024AMR165915

PATIENT
  Age: 79 Year
  Sex: Female

DRUGS (2)
  1. AMBRISENTAN [Suspect]
     Active Substance: AMBRISENTAN
     Indication: Pulmonary arterial hypertension
     Dosage: 10 MG, QD
     Route: 048
     Dates: start: 20240710
  2. CORTISONE [Suspect]
     Active Substance: CORTISONE
     Indication: Product used for unknown indication
     Route: 065

REACTIONS (9)
  - Surgery [Unknown]
  - Nausea [Unknown]
  - Pain [Not Recovered/Not Resolved]
  - Headache [Unknown]
  - Myalgia [Not Recovered/Not Resolved]
  - Product dose omission issue [Unknown]
  - Pain in extremity [Unknown]
  - Neck pain [Unknown]
  - Diarrhoea [Unknown]

NARRATIVE: CASE EVENT DATE: 20250206
